FAERS Safety Report 7715442-6 (Version None)
Quarter: 2011Q3

REPORT INFORMATION
  Report Type: 
  Country: None (occurrence: None)
  Receive Date: 20110829
  Receipt Date: 20110815
  Transmission Date: 20111222
  Serious: Yes (Other)
  Sender: FDA-Public Use
  Company Number: AU-CELGENEUS-008-21880-11060435

PATIENT
  Sex: Male

DRUGS (9)
  1. DEXAMETHASONE [Suspect]
     Indication: MULTIPLE MYELOMA
     Route: 065
     Dates: start: 20110303
  2. DURAGESIC-100 [Concomitant]
     Dosage: 600 MICROGRAM
     Route: 065
     Dates: start: 20110729, end: 20110801
  3. PANTOPRAZOLE [Concomitant]
     Dosage: 40 MILLIGRAM
     Route: 065
     Dates: start: 20110723, end: 20110731
  4. REVLIMID [Suspect]
     Indication: MULTIPLE MYELOMA
     Route: 048
     Dates: start: 20110303
  5. TRAMADOL HCL [Concomitant]
     Route: 065
     Dates: start: 20110720, end: 20110726
  6. ENOXAPARIN SODIUM [Concomitant]
     Dosage: 20 MILLIGRAM
     Route: 065
     Dates: start: 20110722, end: 20110723
  7. ENOXAPARIN SODIUM [Concomitant]
     Dosage: 40 MILLIGRAM
     Route: 065
     Dates: start: 20110723, end: 20110801
  8. OXYCODONE HCL [Concomitant]
     Route: 065
     Dates: start: 20110731, end: 20110801
  9. TIMENTIN [Concomitant]
     Dosage: 12 GRAM
     Route: 065
     Dates: start: 20110720, end: 20110727

REACTIONS (1)
  - ENTEROVESICAL FISTULA [None]
